FAERS Safety Report 9030327 (Version 2)
Quarter: 2013Q1

REPORT INFORMATION
  Report Type: Spontaneous
  Country: BR (occurrence: BR)
  Receive Date: 20130122
  Receipt Date: 20130208
  Transmission Date: 20140127
  Serious: Yes (Other)
  Sender: FDA-Public Use
  Company Number: BR-BRISTOL-MYERS SQUIBB COMPANY-16593717

PATIENT
  Age: 68 Year
  Sex: Male
  Weight: 71 kg

DRUGS (3)
  1. SPRYCEL (CML) TABS 50 MG [Suspect]
     Indication: CHRONIC MYELOID LEUKAEMIA
     Dosage: DOSE DECRSD TO 100MG.PTUSED 140MG.ALSO TAKEN DASA TABS20MG,2TABS DAILY,CHANGED TO 1TABAND 1/2TAB.
     Route: 048
     Dates: start: 2012
  2. PURAN T4 [Concomitant]
     Dosage: FOR 2 YEARS.
  3. AMLODIPINE [Concomitant]

REACTIONS (10)
  - Malignant neoplasm progression [Unknown]
  - Haematochezia [Recovered/Resolved]
  - Cardiac disorder [Unknown]
  - Fatigue [Recovering/Resolving]
  - Pleural effusion [Recovering/Resolving]
  - Hypersensitivity [Recovering/Resolving]
  - Nausea [Unknown]
  - Vomiting [Unknown]
  - Wound [Recovered/Resolved]
  - Rash [Unknown]
